FAERS Safety Report 7364474-9 (Version None)
Quarter: 2011Q1

REPORT INFORMATION
  Report Type: 
  Country: None (occurrence: None)
  Receive Date: 20110321
  Receipt Date: 20110316
  Transmission Date: 20110831
  Serious: Yes (Hospitalization)
  Sender: FDA-Public Use
  Company Number: US-BRISTOL-MYERS SQUIBB COMPANY-15612450

PATIENT
  Age: 72 Year
  Sex: Female
  Weight: 56 kg

DRUGS (4)
  1. TAXOL [Suspect]
     Indication: NON-SMALL CELL LUNG CANCER
     Dosage: 45MG /M2 WEEKLY
     Dates: start: 20110215
  2. DOXYCYCLINE [Concomitant]
  3. CARBOPLATIN [Suspect]
     Indication: NON-SMALL CELL LUNG CANCER
     Dosage: 2AUC WEEKLY, LAST DOSE ON 15MAR2011.
     Dates: start: 20110215
  4. ERBITUX [Suspect]
     Indication: NON-SMALL CELL LUNG CANCER
     Dosage: LAST DOSE ON 15MAR2011.400MG/M2 DAY 1,250MG/M2 WEEKLY
     Dates: start: 20110215

REACTIONS (1)
  - PYREXIA [None]
